FAERS Safety Report 14122162 (Version 1)
Quarter: 2017Q4

REPORT INFORMATION
  Report Type: Spontaneous
  Country: GB (occurrence: GB)
  Receive Date: 20171024
  Receipt Date: 20171024
  Transmission Date: 20180321
  Serious: Yes (Other)
  Sender: FDA-Public Use
  Company Number: GB-BAYER-2017-197050

PATIENT
  Age: 38 Year
  Sex: Female
  Weight: 59 kg

DRUGS (8)
  1. BLEOMYCIN [Concomitant]
     Active Substance: BLEOMYCIN SULFATE
  2. TINZAPARIN [Concomitant]
     Active Substance: TINZAPARIN
  3. ESTRADIOL. [Suspect]
     Active Substance: ESTRADIOL
     Indication: HORMONE REPLACEMENT THERAPY
     Dosage: 2 DF, QD
     Route: 061
     Dates: start: 20171003
  4. PARACETAMOL [Concomitant]
     Active Substance: ACETAMINOPHEN
  5. ETOPOSIDE PHOSPHATE [Concomitant]
     Active Substance: ETOPOSIDE PHOSPHATE
  6. PEGFILGRASTIM [Concomitant]
     Active Substance: PEGFILGRASTIM
  7. CISPLATINE-TEVA [Concomitant]
  8. OXYCODONE HYDROCHLORIDE. [Concomitant]
     Active Substance: OXYCODONE HYDROCHLORIDE

REACTIONS (1)
  - Hypoaesthesia [Unknown]

NARRATIVE: CASE EVENT DATE: 20171003
